FAERS Safety Report 19656316 (Version 1)
Quarter: 2021Q3

REPORT INFORMATION
  Report Type: Report from Study
  Country: US (occurrence: US)
  Receive Date: 20210804
  Receipt Date: 20210804
  Transmission Date: 20211014
  Serious: Yes (Other)
  Sender: FDA-Public Use
  Company Number: US-SAOL THERAPEUTICS-2021SAO00263

PATIENT
  Age: 48 Year
  Sex: Male
  Weight: 72 kg

DRUGS (1)
  1. LIORESAL [Suspect]
     Active Substance: BACLOFEN
     Dosage: 724.31477 ?G, \DAY
     Route: 037

REACTIONS (5)
  - Implant site haematoma [Recovered/Resolved]
  - Implant site haemorrhage [Recovered/Resolved]
  - Implant site infection [Recovered/Resolved]
  - Implant site cellulitis [Recovered/Resolved]
  - Device dislocation [Recovered/Resolved]

NARRATIVE: CASE EVENT DATE: 20200430
